FAERS Safety Report 5761744-2 (Version None)
Quarter: 2008Q2

REPORT INFORMATION
  Report Type: 
  Country: None (occurrence: None)
  Receive Date: 20080602
  Receipt Date: 20080521
  Transmission Date: 20081010
  Serious: Yes (Other)
  Sender: FDA-Public Use
  Company Number: DSA_31805_2008

PATIENT
  Sex: Female

DRUGS (4)
  1. LORAZEPAM [Suspect]
     Indication: ANXIETY
     Dosage: (1 MG BID ORAL)
     Route: 048
     Dates: start: 20080207
  2. ZYPREXA [Suspect]
     Indication: BIPOLAR II DISORDER
     Dosage: (10 MG), 15 MG QD THE DRUG IS TAKEN AT BEDTIME ORAL
     Route: 048
     Dates: start: 20080207, end: 20080420
  3. ZYPREXA [Suspect]
     Indication: BIPOLAR II DISORDER
     Dosage: (10 MG), 15 MG QD THE DRUG IS TAKEN AT BEDTIME ORAL
     Route: 048
     Dates: start: 20080421
  4. CITALOPRAM HYDROBROMIDE [Concomitant]

REACTIONS (3)
  - ABORTION SPONTANEOUS [None]
  - DRUG EXPOSURE DURING PREGNANCY [None]
  - PREGNANCY [None]
